FAERS Safety Report 5897378-9 (Version None)
Quarter: 2008Q3

REPORT INFORMATION
  Report Type: 
  Country: None (occurrence: None)
  Receive Date: 20080915
  Receipt Date: 20070727
  Transmission Date: 20090109
  Serious: Yes (Other)
  Sender: FDA-Public Use
  Company Number: PHEH2007US08330

PATIENT
  Age: 55 Year
  Sex: Female
  Weight: 67.1 kg

DRUGS (1)
  1. ZELNORM [Suspect]
     Indication: CONSTIPATION
     Dosage: 6 MG, BID, ORAL
     Route: 048
     Dates: start: 20070208, end: 20070401

REACTIONS (1)
  - CHEST PAIN [None]
